FAERS Safety Report 9800076 (Version 1)
Quarter: 2014Q1

REPORT INFORMATION
  Report Type: Spontaneous
  Country: US (occurrence: US)
  Receive Date: 20140106
  Receipt Date: 20140106
  Transmission Date: 20141002
  Serious: No
  Sender: FDA-Public Use
  Company Number: US-GILEAD-2010-0032489

PATIENT
  Sex: Female

DRUGS (11)
  1. LETAIRIS [Suspect]
     Indication: PULMONARY ARTERIAL HYPERTENSION
     Route: 048
     Dates: start: 20100811
  2. BYSTOLIC [Concomitant]
  3. NORVASC [Concomitant]
  4. LISINOPRIL [Concomitant]
  5. CRESTOR [Concomitant]
  6. PLAVIX [Concomitant]
  7. SENOKOT [Concomitant]
  8. VICODIN [Concomitant]
  9. MELOXICAM [Concomitant]
  10. TYLENOL [Concomitant]
  11. POTASSIUM [Concomitant]

REACTIONS (2)
  - No therapeutic response [Not Recovered/Not Resolved]
  - Dyspnoea [Not Recovered/Not Resolved]
